FAERS Safety Report 14151473 (Version 1)
Quarter: 2017Q4

REPORT INFORMATION
  Report Type: Spontaneous
  Country: US (occurrence: US)
  Receive Date: 20171102
  Receipt Date: 20171102
  Transmission Date: 20180321
  Serious: No
  Sender: FDA-Public Use
  Company Number: US-PFIZER INC-2017469452

PATIENT
  Age: 78 Year
  Sex: Female
  Weight: 76.2 kg

DRUGS (3)
  1. ADVIL [Suspect]
     Active Substance: IBUPROFEN
     Indication: PAIN
     Dosage: 1-2 LIQUIGELS AS NEEDED,CONSUMES 3 CAPSULES AT A TIME
  2. LOSARTAN. [Concomitant]
     Active Substance: LOSARTAN
     Indication: HYPERTENSION
     Dosage: 25 MG, 1X/DAY
  3. ASPIRIN. [Concomitant]
     Active Substance: ASPIRIN
     Dosage: 81 MG, 1X/DAY

REACTIONS (2)
  - Drug effect incomplete [Not Recovered/Not Resolved]
  - Intentional product misuse [Not Recovered/Not Resolved]
